FAERS Safety Report 16762111 (Version 1)
Quarter: 2019Q3

REPORT INFORMATION
  Report Type: Spontaneous
  Country: FR (occurrence: FR)
  Receive Date: 20190830
  Receipt Date: 20190830
  Transmission Date: 20191005
  Serious: Yes (Hospitalization)
  Sender: FDA-Public Use
  Company Number: PHHY2019FR201978

PATIENT
  Sex: Female

DRUGS (3)
  1. RIFAMPICIN [Suspect]
     Active Substance: RIFAMPIN
     Dosage: 600 MG, BID
     Route: 065
     Dates: end: 20150218
  2. COLISTIN [Suspect]
     Active Substance: COLISTIN
     Indication: ACINETOBACTER TEST POSITIVE
     Dosage: UNK
     Route: 065
     Dates: end: 20150218
  3. RIFAMPICIN [Suspect]
     Active Substance: RIFAMPIN
     Indication: ACINETOBACTER TEST POSITIVE
     Dosage: UNK
     Route: 065
     Dates: start: 20141225, end: 20141230

REACTIONS (2)
  - Drug resistance [Unknown]
  - Product use in unapproved indication [Unknown]
